FAERS Safety Report 8491485-2 (Version None)
Quarter: 2012Q3

REPORT INFORMATION
  Report Type: 
  Country: None (occurrence: None)
  Receive Date: 20120706
  Receipt Date: 20120629
  Transmission Date: 20120928
  Serious: Yes (Hospitalization)
  Sender: FDA-Public Use
  Company Number: FR-PFIZER INC-2012156418

PATIENT
  Age: 52 Year
  Sex: Female

DRUGS (6)
  1. VIRAFERONPEG [Concomitant]
     Indication: HEPATITIS C
     Dosage: 100 A?G, 1 INJECTION PER WEEK
  2. XANAX [Suspect]
     Dosage: 0.5 MG, 1X/DAY
     Route: 048
     Dates: start: 20120201, end: 20120515
  3. IMOVANE [Concomitant]
     Dosage: UNK
  4. VICTRELIS [Suspect]
     Dosage: 800 MG, 3X/DAY
     Route: 048
     Dates: start: 20120130, end: 20120515
  5. PAROXETINE HCL [Suspect]
     Dosage: 1 DF, 1X/DAY
     Route: 048
     Dates: start: 20120201, end: 20120515
  6. REBETOL [Concomitant]
     Indication: HEPATITIS C
     Dosage: 1000 MG DAILY

REACTIONS (5)
  - PRURITUS [None]
  - FACE OEDEMA [None]
  - RASH [None]
  - LYMPHADENITIS [None]
  - PYREXIA [None]
